FAERS Safety Report 8779706 (Version 1)
Quarter: 2012Q4

REPORT INFORMATION
  Report Type: 
  Country: US (occurrence: US)
  Receive Date: 20120912
  Receipt Date: 20120912
  Transmission Date: 20130627
  Serious: No
  Sender: FDA-Public Use
  Company Number: US-TEVA-356663USA

PATIENT
  Age: 65 Year
  Sex: Male
  Weight: 108.96 kg

DRUGS (10)
  1. QNASL [Suspect]
     Indication: EUSTACHIAN TUBE OBSTRUCTION
     Dosage: 320 Microgram Daily;
     Route: 045
     Dates: start: 20120824
  2. ALLEGRA [Concomitant]
     Indication: HYPERSENSITIVITY
     Dosage: 180 Milligram Daily;
     Route: 048
  3. ACCOLATE [Concomitant]
     Indication: HYPERSENSITIVITY
     Dosage: 10 Milligram Daily;
     Route: 048
  4. ZIAC [Concomitant]
     Indication: HYPERTENSION
     Dosage: 5 mg/6.25 mg
     Route: 048
  5. ASPIRIN [Concomitant]
     Indication: PROPHYLAXIS
     Dosage: 325 Milligram Daily;
  6. RANITIDINE [Concomitant]
     Indication: ABDOMINAL DISCOMFORT
     Dosage: 150 Milligram Daily;
     Route: 048
  7. NIACIN [Concomitant]
     Indication: BLOOD TRIGLYCERIDES INCREASED
     Dosage: 1000 Milligram Daily;
     Route: 048
  8. FISH OIL [Concomitant]
     Dosage: 2800 Unknown Daily;
     Route: 048
  9. AMARYL [Concomitant]
     Indication: DIABETES MELLITUS
     Dosage: 4 Milligram Daily;
     Route: 048
  10. VITAMIN D3 [Concomitant]
     Dosage: 5000  Daily;
     Route: 048

REACTIONS (1)
  - Initial insomnia [Not Recovered/Not Resolved]
